FAERS Safety Report 23070544 (Version 1)
Quarter: 2023Q4

REPORT INFORMATION
  Report Type: Spontaneous
  Country: CN (occurrence: CN)
  Receive Date: 20231016
  Receipt Date: 20231016
  Transmission Date: 20240110
  Serious: Yes (Other)
  Sender: FDA-Public Use
  Company Number: CN-PFIZER INC-PV202300167915

PATIENT
  Age: 29 Year
  Sex: Female
  Weight: 62 kg

DRUGS (1)
  1. CARBOPROST TROMETHAMINE [Suspect]
     Active Substance: CARBOPROST TROMETHAMINE
     Indication: Uterine hypotonus
     Dosage: 1.000 ML, 1X/DAY
     Route: 030
     Dates: start: 20230726, end: 20230726

REACTIONS (5)
  - Nausea [Recovered/Resolved]
  - Vomiting [Recovered/Resolved]
  - Muscle rigidity [Recovered/Resolved]
  - Musculoskeletal stiffness [Recovering/Resolving]
  - Musculoskeletal stiffness [Recovering/Resolving]

NARRATIVE: CASE EVENT DATE: 20230726
